FAERS Safety Report 18452795 (Version 1)
Quarter: 2020Q4

REPORT INFORMATION
  Report Type: Report from Study
  Country: BR (occurrence: BR)
  Receive Date: 20201102
  Receipt Date: 20201102
  Transmission Date: 20210114
  Serious: Yes (Hospitalization)
  Sender: FDA-Public Use
  Company Number: BR-JNJFOC-20200829323

PATIENT
  Age: 47 Year
  Sex: Male
  Weight: 113 kg

DRUGS (2)
  1. STELARA [Suspect]
     Active Substance: USTEKINUMAB
  2. STELARA [Suspect]
     Active Substance: USTEKINUMAB
     Indication: PSORIASIS
     Route: 058
     Dates: start: 20200805

REACTIONS (3)
  - Dermatitis exfoliative generalised [Unknown]
  - Dizziness [Unknown]
  - Nervousness [Unknown]

NARRATIVE: CASE EVENT DATE: 20200805
